FAERS Safety Report 7072738-1 (Version None)
Quarter: 2010Q4

REPORT INFORMATION
  Report Type: 
  Country: None (occurrence: None)
  Receive Date: 20101029
  Receipt Date: 20100430
  Transmission Date: 20110411
  Serious: No
  Sender: FDA-Public Use
  Company Number: A0848681A

PATIENT
  Age: 60 Year
  Sex: Female

DRUGS (18)
  1. ADVAIR DISKUS 100/50 [Suspect]
     Indication: CHRONIC OBSTRUCTIVE PULMONARY DISEASE
     Dosage: 2PUFF TWICE PER DAY
     Route: 055
  2. ZOLPIDEM [Concomitant]
  3. TRAZODONE [Concomitant]
  4. FENTANYL-75 [Concomitant]
  5. OXYCODONE [Concomitant]
  6. NEXIUM [Concomitant]
  7. NABUMETONE [Concomitant]
  8. KEPPRA [Concomitant]
  9. CYMBALTA [Concomitant]
  10. METOPROLOL [Concomitant]
  11. METHOCARBAMOL [Concomitant]
  12. SINGULAIR [Concomitant]
  13. GABAPENTIN [Concomitant]
  14. CRESTOR [Concomitant]
  15. CALCIUM [Concomitant]
  16. MULTI-VITAMIN [Concomitant]
  17. ASCORBIC ACID [Concomitant]
  18. UNKNOWN MEDICATION [Concomitant]
     Indication: OSTEOPOROSIS

REACTIONS (2)
  - COUGH [None]
  - PRODUCT QUALITY ISSUE [None]
